FAERS Safety Report 10038731 (Version 1)
Quarter: 2014Q1

REPORT INFORMATION
  Report Type: Spontaneous
  Country: US (occurrence: None)
  Receive Date: 20140306
  Receipt Date: 20140306
  Transmission Date: 20141002
  Serious: Yes (Other)
  Sender: FDA-Public Use
  Company Number: 163-21880-13073029

PATIENT
  Age: 52 Year
  Sex: Male
  Weight: 149.69 kg

DRUGS (14)
  1. REVLIMID (LENALIDOMIDE) (25 MILLIGRAM, CAPSULES) [Suspect]
     Indication: PLASMA CELL MYELOMA
     Route: 048
     Dates: start: 20110224
  2. NEURONTIN (GABAPENTIN) [Concomitant]
  3. CITALOPRAM HBR (CITALOPRAM HYDROBROMIDE) [Concomitant]
  4. CEFTIN (CEFUROXIME AXETIL) (TABLETS) [Concomitant]
  5. ALLOPURINOL (ALLOPURINOL) [Concomitant]
  6. OXYCODONE-ACETAMINOPHEN (OXYCOCET) [Concomitant]
  7. ZOLPIDEM TARTRATE (ZOLPIDEM TARTRATE) [Concomitant]
  8. ZOMETA (ZOLEDRONIC ACID) [Concomitant]
  9. LIDOCAINE HCL (LIDOCAINE HYDROCHLORIDE) [Concomitant]
  10. VANCOMYCIN HCL (VANCOMYCIN HYDROCHLORIDE) [Concomitant]
  11. VELCADE (BORTEZOMIB) [Concomitant]
  12. POTASSIUM CHLORIDE (POTASSIUM CHLORIDE [Concomitant]
  13. COMPAZINE (PROCHLORPERAZINE EDISYLATE) [Concomitant]
  14. COLCHICINE (COLCHICINE [Concomitant]

REACTIONS (4)
  - Pulmonary thrombosis [None]
  - Thrombosis [None]
  - Fatigue [None]
  - Diarrhoea [None]
